FAERS Safety Report 6235484-X (Version None)
Quarter: 2009Q2

REPORT INFORMATION
  Report Type: 
  Country: None (occurrence: None)
  Receive Date: 20090618
  Receipt Date: 20080514
  Transmission Date: 20091009
  Serious: No
  Sender: FDA-Public Use
  Company Number: US-ASTRAZENECA-2008UW10015

PATIENT
  Age: 55 Year
  Sex: Male

DRUGS (1)
  1. RHINOCORT [Suspect]
     Indication: SINUS CONGESTION
     Dosage: 1 SPRAY EACH NOSTRIL QD OR QOD AS NEEDED
     Route: 045
     Dates: start: 20060101

REACTIONS (1)
  - NASAL ULCER [None]
